FAERS Safety Report 9498492 (Version 1)
Quarter: 2013Q3

REPORT INFORMATION
  Report Type: Spontaneous
  Country: BR (occurrence: BR)
  Receive Date: 20130904
  Receipt Date: 20130904
  Transmission Date: 20140515
  Serious: Yes (Other)
  Sender: FDA-Public Use
  Company Number: BR-BRISTOL-MYERS SQUIBB COMPANY-19214568

PATIENT
  Age: 41 Year
  Sex: Female

DRUGS (17)
  1. BARACLUDE TABS 0.5 MG [Suspect]
     Indication: HEPATITIS B
     Dosage: CONMEDS-HERBAL DRUGS
     Route: 048
     Dates: start: 201112
  2. ACETAMINOPHEN [Interacting]
  3. KETOROLAC TROMETAMOL [Interacting]
     Dates: start: 2011
  4. PRISTIQ [Interacting]
     Dates: start: 2011
  5. TRAMADOL HCL [Interacting]
     Dates: start: 2011
  6. CYCLOBENZAPRINE [Interacting]
     Dates: start: 2011
  7. PREDNISONE [Interacting]
     Dates: start: 2011
  8. DEPAKOTE [Interacting]
     Dates: start: 2011
  9. FLUOXETINE [Interacting]
     Dates: start: 2013
  10. ESCITALOPRAM OXALATE [Interacting]
     Dates: start: 2013
  11. GABAPENTIN [Interacting]
  12. VITAMIN D [Concomitant]
     Dates: start: 2011
  13. PANTOPRAZOLE [Concomitant]
     Dates: start: 2011
  14. BISOPROLOL [Concomitant]
     Dates: start: 2011
  15. LACTULONA [Concomitant]
  16. CALCIUM POLYCARBOPHIL [Concomitant]
  17. MACROGOL 3350 [Concomitant]
     Indication: GASTROINTESTINAL DISORDER

REACTIONS (3)
  - Virologic failure [Unknown]
  - Drug interaction [Unknown]
  - Alanine aminotransferase increased [Unknown]
